FAERS Safety Report 5838623-5 (Version None)
Quarter: 2008Q3

REPORT INFORMATION
  Report Type: 
  Country: None (occurrence: None)
  Receive Date: 20080808
  Receipt Date: 20080623
  Transmission Date: 20090109
  Serious: No
  Sender: FDA-Public Use
  Company Number: A0732445A

PATIENT
  Age: 36 Year
  Sex: Female

DRUGS (4)
  1. ALTABAX [Suspect]
     Dosage: 10MG PER DAY
     Route: 061
     Dates: start: 20080101
  2. REMICADE [Concomitant]
  3. DOXYCYCLINE HCL [Concomitant]
     Indication: DRUG USE FOR UNKNOWN INDICATION
  4. UNKNOWN DRUG [Concomitant]
     Dates: start: 20080101

REACTIONS (3)
  - BURNING SENSATION [None]
  - PAIN [None]
  - PARAESTHESIA [None]
